FAERS Safety Report 8379450-7 (Version None)
Quarter: 2012Q2

REPORT INFORMATION
  Report Type: 
  Country: None (occurrence: None)
  Receive Date: 20120523
  Receipt Date: 20120517
  Transmission Date: 20120825
  Serious: No
  Sender: FDA-Public Use
  Company Number: US-PFIZER INC-2012106950

PATIENT
  Sex: Male
  Weight: 68.027 kg

DRUGS (14)
  1. COUMADIN [Concomitant]
     Indication: ATRIAL FIBRILLATION
     Dosage: UNK
  2. LISINOPRIL [Concomitant]
     Indication: CARDIAC DISORDER
     Dosage: 2.5 MG, 1X/DAY
  3. KLOR-CON [Concomitant]
     Dosage: 20 MEQ, DAILY
  4. LASIX [Concomitant]
     Indication: CARDIAC FAILURE CONGESTIVE
     Dosage: 40 MG, 1X/DAY
     Route: 048
  5. TIKOSYN [Suspect]
     Indication: ATRIAL FIBRILLATION
     Dosage: 0.25 MG, 2X/DAY
     Route: 048
     Dates: start: 20120301
  6. PLAVIX [Concomitant]
     Indication: CARDIAC DISORDER
     Dosage: 75 MG, 1X/DAY
  7. ASPIRIN [Concomitant]
     Indication: CARDIAC DISORDER
     Dosage: 325 MG, 1X/DAY
  8. TRAMADOL [Concomitant]
     Indication: BACK DISORDER
  9. LOPRESSOR [Concomitant]
     Indication: CHEST PAIN
     Dosage: 25 MG, DAILY
  10. FENOFIBRATE [Concomitant]
     Indication: BLOOD CHOLESTEROL INCREASED
     Dosage: 160 MG, 1X/DAY
  11. PRILOSEC [Concomitant]
     Indication: ABDOMINAL DISCOMFORT
     Dosage: 20 MG, 1X/DAY
  12. XANAX [Concomitant]
     Indication: ANXIETY
     Dosage: 1 MG, 3X/DAY
     Route: 048
  13. AMBIEN [Concomitant]
     Indication: INSOMNIA
     Dosage: 10 MG, 1X/DAY
     Route: 048
  14. TRAMADOL [Concomitant]
     Indication: PAIN
     Dosage: 50 MG, 3X/DAY (ONE TO TWO TABLETS)
     Route: 048

REACTIONS (5)
  - DRY MOUTH [None]
  - PRURITUS [None]
  - HEARING IMPAIRED [None]
  - EAR DISCOMFORT [None]
  - DYSPHAGIA [None]
